FAERS Safety Report 13944256 (Version 4)
Quarter: 2018Q2

REPORT INFORMATION
  Report Type: Report from Study
  Country: US (occurrence: US)
  Receive Date: 20170907
  Receipt Date: 20180411
  Transmission Date: 20180711
  Serious: Yes (Hospitalization, Other)
  Sender: FDA-Public Use
  Company Number: US-BIOGEN-2017BI00453512

PATIENT
  Sex: Female
  Weight: 56.75 kg

DRUGS (13)
  1. FERROUS SULFATE. [Concomitant]
     Active Substance: FERROUS SULFATE
     Indication: PRODUCT USED FOR UNKNOWN INDICATION
     Route: 065
  2. MEGESTROL ACETATE. [Concomitant]
     Active Substance: MEGESTROL ACETATE
     Indication: PRODUCT USED FOR UNKNOWN INDICATION
     Route: 048
  3. VITAMIN C [Concomitant]
     Active Substance: ASCORBIC ACID
     Indication: PRODUCT USED FOR UNKNOWN INDICATION
     Route: 065
  4. BACLOFEN. [Concomitant]
     Active Substance: BACLOFEN
     Indication: PRODUCT USED FOR UNKNOWN INDICATION
     Route: 048
  5. FISH OIL [Concomitant]
     Active Substance: FISH OIL
     Indication: PRODUCT USED FOR UNKNOWN INDICATION
     Route: 065
  6. VITAMIN D [Concomitant]
     Active Substance: CHOLECALCIFEROL
     Indication: PRODUCT USED FOR UNKNOWN INDICATION
     Route: 065
  7. BUTALBITAL, ACETAMINOPHEN, AND CAFFEINE [Concomitant]
     Active Substance: ACETAMINOPHEN\BUTALBITAL\CAFFEINE
     Indication: HEADACHE
     Dosage: 50-325-40 MG; DO NOT TAKE FOR MORE THAN 3 DAYS A WEEK
     Route: 048
  8. PROPANOLOL HCL [Concomitant]
     Active Substance: PROPRANOLOL HYDROCHLORIDE
     Indication: TREMOR
     Dosage: BEFORE MEALS
     Route: 048
  9. VITAMIN B12 [Concomitant]
     Active Substance: CYANOCOBALAMIN
     Indication: PRODUCT USED FOR UNKNOWN INDICATION
     Route: 065
  10. LATANOPROST. [Concomitant]
     Active Substance: LATANOPROST
     Indication: PRODUCT USED FOR UNKNOWN INDICATION
     Dosage: 0.005 PERCENT
     Route: 065
  11. TYSABRI [Suspect]
     Active Substance: NATALIZUMAB
     Indication: MULTIPLE SCLEROSIS
     Route: 042
     Dates: start: 20121018, end: 201708
  12. CYCLOBENZAPRINE HCL [Concomitant]
     Active Substance: CYCLOBENZAPRINE HYDROCHLORIDE
     Indication: PRODUCT USED FOR UNKNOWN INDICATION
     Route: 048
  13. TRAMADOL HCL [Concomitant]
     Active Substance: TRAMADOL HYDROCHLORIDE
     Indication: PAIN
     Dosage: 1 TO 2 TABLETS EVERY 4 TO 6 HOURS AS NEEDED
     Route: 048

REACTIONS (7)
  - Cerebrovascular accident [Unknown]
  - Post procedural complication [Recovered/Resolved]
  - Asthenia [Not Recovered/Not Resolved]
  - Fall [Recovered/Resolved]
  - Subdural haematoma [Recovered/Resolved]
  - Seizure [Unknown]
  - Multiple sclerosis [Not Recovered/Not Resolved]

NARRATIVE: CASE EVENT DATE: 2017
